FAERS Safety Report 4590656-5 (Version None)
Quarter: 2005Q1

REPORT INFORMATION
  Report Type: 
  Country: None (occurrence: None)
  Receive Date: 20050218
  Receipt Date: 20050218
  Transmission Date: 20050727
  Serious: Yes (Disabling, Other)
  Sender: FDA-Public Use
  Company Number: None

PATIENT
  Age: 77 Year
  Sex: Male

DRUGS (2)
  1. ADVAIR DISKUS 100/50 [Suspect]
     Indication: ASTHMA
     Dosage: 1 PUFF TWICE DAILY
  2. ALBUTEROL OR COMBIVENT INHALER [Concomitant]

REACTIONS (4)
  - DENTAL DISCOMFORT [None]
  - GINGIVAL PAIN [None]
  - TOOTH DISORDER [None]
  - TOOTH LOSS [None]
